FAERS Safety Report 15359303 (Version 5)
Quarter: 2018Q4

REPORT INFORMATION
  Report Type: Report from Study
  Country: IT (occurrence: IT)
  Receive Date: 20180907
  Receipt Date: 20181019
  Transmission Date: 20190204
  Serious: Yes (Hospitalization)
  Sender: FDA-Public Use
  Company Number: PHHO2018IT009900

PATIENT
  Age: 71 Year
  Sex: Male
  Weight: 66 kg

DRUGS (8)
  1. LEVOFLOXACIN. [Concomitant]
     Active Substance: LEVOFLOXACIN
     Indication: ANTIBIOTIC PROPHYLAXIS
     Dosage: 500 MG, UNK
     Route: 048
     Dates: start: 20180703
  2. CGP 41251 / PKC 412A [Suspect]
     Active Substance: MIDOSTAURIN
     Indication: ACUTE MYELOID LEUKAEMIA
     Dosage: 50 MG, BID
     Route: 048
     Dates: start: 20180703, end: 20180821
  3. LGH447 [Suspect]
     Active Substance: INVESTIGATIONAL PRODUCT
     Indication: MYELODYSPLASTIC SYNDROME
  4. FLUBASON [Concomitant]
     Active Substance: DESOXIMETASONE
     Dosage: BID
     Route: 061
  5. LGH447 [Suspect]
     Active Substance: INVESTIGATIONAL PRODUCT
     Indication: ACUTE MYELOID LEUKAEMIA
     Dosage: 250 MG, QD
     Route: 048
     Dates: start: 20180703, end: 20180821
  6. CETRIZINE [Concomitant]
     Active Substance: CETIRIZINE HYDROCHLORIDE
     Indication: RASH MACULO-PAPULAR
     Dosage: 10 MG, BID
     Route: 048
     Dates: start: 20180821
  7. CGP 41251 / PKC 412A [Suspect]
     Active Substance: MIDOSTAURIN
     Indication: MYELODYSPLASTIC SYNDROME
  8. PREDNISONE. [Concomitant]
     Active Substance: PREDNISONE
     Indication: RASH MACULO-PAPULAR
     Dosage: UNK
     Route: 065
     Dates: start: 20180831

REACTIONS (2)
  - Pneumonia [Recovered/Resolved]
  - Dermatitis exfoliative generalised [Recovered/Resolved with Sequelae]

NARRATIVE: CASE EVENT DATE: 20180831
